FAERS Safety Report 25676196 (Version 1)
Quarter: 2025Q3

REPORT INFORMATION
  Report Type: Spontaneous
  Country: US (occurrence: US)
  Receive Date: 20250813
  Receipt Date: 20250813
  Transmission Date: 20251021
  Serious: No
  Sender: SUNOVION
  Company Number: US-SUMITOMO PHARMA SWITZERLAND GMBH-2025SPA010135

PATIENT
  Age: 72 Year
  Sex: Male

DRUGS (2)
  1. ORGOVYX [Suspect]
     Active Substance: RELUGOLIX
     Indication: Prostate cancer
     Dosage: 3 DF, SINGLE (3 TABLETS ORALLY ON THE FIRST DAY)
     Route: 048
  2. ORGOVYX [Suspect]
     Active Substance: RELUGOLIX
     Dosage: 1 DF, QD (1 TABLET ORALLY ONCE DAILY)
     Route: 048

REACTIONS (2)
  - Peripheral swelling [Recovering/Resolving]
  - Dizziness [Unknown]
